FAERS Safety Report 6539453-1 (Version None)
Quarter: 2010Q1

REPORT INFORMATION
  Report Type: 
  Country: None (occurrence: None)
  Receive Date: 20100115
  Receipt Date: 20100107
  Transmission Date: 20100710
  Serious: Yes (Other)
  Sender: FDA-Public Use
  Company Number: FR-ROCHE-678399

PATIENT
  Sex: Female
  Weight: 60 kg

DRUGS (3)
  1. TRASTUZUMAB [Suspect]
     Indication: BREAST CANCER
     Route: 042
  2. BEVACIZUMAB [Suspect]
     Indication: BREAST CANCER
     Route: 042
  3. CAPECITABINE [Suspect]
     Indication: BREAST CANCER
     Route: 048

REACTIONS (1)
  - PRESYNCOPE [None]
